FAERS Safety Report 8555469-8 (Version None)
Quarter: 2012Q3

REPORT INFORMATION
  Report Type: 
  Country: None (occurrence: None)
  Receive Date: 20120731
  Receipt Date: 20120418
  Transmission Date: 20120928
  Serious: Yes (Other)
  Sender: FDA-Public Use
  Company Number: US-ASTRAZENECA-2011SE05428

PATIENT
  Age: 64 Year
  Sex: Male
  Weight: 125.6 kg

DRUGS (11)
  1. XANAX [Concomitant]
  2. SEROQUEL [Suspect]
     Route: 048
     Dates: start: 20110101
  3. MAXZIDE [Concomitant]
  4. OXYCODONE HCL [Concomitant]
  5. SEROQUEL [Suspect]
     Indication: BIPOLAR DISORDER
     Route: 048
     Dates: start: 20060101, end: 20110101
  6. SEROQUEL [Suspect]
     Route: 048
     Dates: start: 20110101, end: 20110101
  7. WELLBUTRIN [Concomitant]
  8. SEROQUEL [Suspect]
     Route: 048
  9. TOPAMAX [Concomitant]
  10. ZANAFLEX [Concomitant]
  11. NIFEDIPINE [Concomitant]

REACTIONS (13)
  - FEELING ABNORMAL [None]
  - THERAPEUTIC RESPONSE UNEXPECTED [None]
  - SUICIDAL IDEATION [None]
  - DEPRESSION [None]
  - INSOMNIA [None]
  - NIGHTMARE [None]
  - AGITATION [None]
  - NERVOUSNESS [None]
  - WEIGHT INCREASED [None]
  - AGGRESSION [None]
  - ANGER [None]
  - ANXIETY [None]
  - DRUG DOSE OMISSION [None]
